FAERS Safety Report 4935344-8 (Version None)
Quarter: 2006Q1

REPORT INFORMATION
  Report Type: 
  Country: None (occurrence: None)
  Receive Date: 20060307
  Receipt Date: 20050713
  Transmission Date: 20060701
  Serious: No
  Sender: FDA-Public Use
  Company Number: US-GLAXOSMITHKLINE-A0566104A

PATIENT
  Age: 49 Year
  Sex: Female
  Weight: 63.6 kg

DRUGS (6)
  1. REQUIP [Suspect]
     Indication: PARKINSON'S DISEASE
     Dosage: 2MG VARIABLE DOSE
     Route: 048
     Dates: start: 20040501
  2. SINEMET [Concomitant]
     Indication: PARKINSONISM
     Route: 048
     Dates: start: 19980101
  3. ATIVAN [Concomitant]
     Indication: ANXIETY
     Dosage: .5MG THREE TIMES PER DAY
     Route: 048
     Dates: start: 19980101
  4. ORTHO CYCLEN-28 [Concomitant]
     Dosage: 1TAB PER DAY
     Route: 048
     Dates: start: 19980101
  5. EFFEXOR XR [Concomitant]
     Indication: DEPRESSION
     Dosage: 75MG TWICE PER DAY
     Route: 048
     Dates: start: 19980101
  6. ADVIL [Concomitant]
     Route: 048

REACTIONS (1)
  - OEDEMA PERIPHERAL [None]
